FAERS Safety Report 10658256 (Version 2)
Quarter: 2014Q4

REPORT INFORMATION
  Report Type: Spontaneous
  Country: US (occurrence: US)
  Receive Date: 20141217
  Receipt Date: 20141217
  Transmission Date: 20150529
  Serious: No
  Sender: FDA-Public Use
  Company Number: US-GLAXOSMITHKLINE-A1058677A

PATIENT

DRUGS (11)
  1. FINASTERIDE. [Concomitant]
     Active Substance: FINASTERIDE
  2. TYLENOL PM [Concomitant]
     Active Substance: ACETAMINOPHEN\DIPHENHYDRAMINE
  3. ASPIRIN. [Concomitant]
     Active Substance: ASPIRIN
  4. MULTIVITAMIN [Concomitant]
     Active Substance: VITAMINS
  5. EXCEDRIN [Concomitant]
     Active Substance: ACETAMINOPHEN\ASPIRIN\CAFFEINE
  6. VOTRIENT [Suspect]
     Active Substance: PAZOPANIB HYDROCHLORIDE
     Indication: RENAL CELL CARCINOMA
     Route: 048
     Dates: start: 20130131
  7. CALCIUM PLUS D [Concomitant]
     Active Substance: CALCIUM\VITAMIN D
  8. MELATONIN [Concomitant]
     Active Substance: MELATONIN
  9. LISINOPRIL. [Concomitant]
     Active Substance: LISINOPRIL
  10. VOTRIENT [Suspect]
     Active Substance: PAZOPANIB HYDROCHLORIDE
     Indication: RENAL NEOPLASM
  11. AMLODIPINE [Concomitant]
     Active Substance: AMLODIPINE BESYLATE

REACTIONS (2)
  - Condition aggravated [Unknown]
  - Disease progression [Unknown]
